FAERS Safety Report 6358077-2 (Version None)
Quarter: 2009Q3

REPORT INFORMATION
  Report Type: 
  Country: None (occurrence: None)
  Receive Date: 20090916
  Receipt Date: 20090907
  Transmission Date: 20100115
  Serious: Yes (Hospitalization)
  Sender: FDA-Public Use
  Company Number: B0591708A

PATIENT
  Age: 78 Year
  Sex: Female

DRUGS (4)
  1. DEROXAT [Suspect]
     Indication: DRUG USE FOR UNKNOWN INDICATION
     Dosage: .5TAB TWICE PER DAY
     Route: 048
     Dates: start: 20090811
  2. ARTANE [Concomitant]
     Route: 065
  3. ATHYMIL [Concomitant]
     Route: 065
  4. TEGRETOL-XR [Concomitant]
     Route: 065

REACTIONS (3)
  - DYSKINESIA [None]
  - EXTRAPYRAMIDAL DISORDER [None]
  - MUCOSAL DRYNESS [None]
